FAERS Safety Report 10682116 (Version 1)
Quarter: 2014Q4

REPORT INFORMATION
  Report Type: Spontaneous
  Country: FR (occurrence: FR)
  Receive Date: 20141230
  Receipt Date: 20141230
  Transmission Date: 20150529
  Serious: Yes (Death, Hospitalization)
  Sender: FDA-Public Use
  Company Number: FR-ASTRAZENECA-2014SE98742

PATIENT
  Age: 29779 Day
  Sex: Female

DRUGS (7)
  1. TARDYFERON [Suspect]
     Active Substance: FERROUS SULFATE\FOLIC ACID
     Route: 048
     Dates: start: 20141031
  2. IMUREL [Suspect]
     Active Substance: AZATHIOPRINE SODIUM
     Route: 048
     Dates: start: 20141031, end: 20141120
  3. TEMESTA [Concomitant]
     Active Substance: LORAZEPAM
     Route: 048
  4. VITAMIN K1 (ROCHE) [Concomitant]
     Dosage: STRENGHT: 2 MG / 0.2 ML, TWICE A WEEK
     Route: 048
  5. ENTOCORT [Suspect]
     Active Substance: BUDESONIDE
     Route: 048
     Dates: start: 20141031, end: 20141120
  6. TARDYFERON [Suspect]
     Active Substance: FERROUS SULFATE\FOLIC ACID
     Dosage: KARDEGIC
     Route: 048
     Dates: start: 201404
  7. TAREG [Concomitant]
     Active Substance: VALSARTAN
     Route: 048

REACTIONS (1)
  - Duodenal ulcer [Fatal]

NARRATIVE: CASE EVENT DATE: 20141118
